FAERS Safety Report 15195383 (Version 1)
Quarter: 2018Q3

REPORT INFORMATION
  Report Type: Other
  Country: CA (occurrence: CA)
  Receive Date: 20180725
  Receipt Date: 20180725
  Transmission Date: 20181010
  Serious: Yes (Other)
  Sender: FDA-Public Use
  Company Number: CA-APOTEX-2018AP017478

PATIENT
  Age: 84 Year
  Sex: Male

DRUGS (3)
  1. RANITIDINE. [Suspect]
     Active Substance: RANITIDINE
     Indication: CHRONIC SPONTANEOUS URTICARIA
     Dosage: 50 MG, QD
     Route: 048
  2. REACTINE                           /00884302/ [Concomitant]
     Active Substance: CETIRIZINE HYDROCHLORIDE
     Indication: CHRONIC SPONTANEOUS URTICARIA
     Dosage: 1 DF, QD
     Route: 048
  3. PREDNISONE. [Concomitant]
     Active Substance: PREDNISONE
     Indication: CHRONIC SPONTANEOUS URTICARIA
     Dosage: 1 DF, QD
     Route: 048

REACTIONS (10)
  - Condition aggravated [Unknown]
  - Dyspnoea [Unknown]
  - Stress [Unknown]
  - Urticaria [Unknown]
  - Angioedema [Unknown]
  - Asthma [Unknown]
  - Joint swelling [Unknown]
  - Pruritus [Unknown]
  - Swelling face [Unknown]
  - Arthralgia [Unknown]
